FAERS Safety Report 15138937 (Version 1)
Quarter: 2018Q3

REPORT INFORMATION
  Report Type: Spontaneous
  Country: IT (occurrence: IT)
  Receive Date: 20180713
  Receipt Date: 20180713
  Transmission Date: 20181010
  Serious: Yes (Hospitalization)
  Sender: FDA-Public Use
  Company Number: IT-ACCORD-069426

PATIENT
  Age: 89 Year
  Sex: Female

DRUGS (3)
  1. NEBIVOLOL. [Concomitant]
     Active Substance: NEBIVOLOL
     Indication: CARDIAC FAILURE
     Route: 048
  2. INSULIN LISPRO/INSULIN LISPRO PROTAMINE SUSPE [Concomitant]
     Indication: DIABETES MELLITUS
     Route: 058
  3. QUETIAPINE. [Suspect]
     Active Substance: QUETIAPINE
     Indication: COGNITIVE DISORDER
     Route: 048

REACTIONS (4)
  - Hallucination, visual [Recovering/Resolving]
  - Disorientation [Recovering/Resolving]
  - Conduct disorder [Recovering/Resolving]
  - Confusional state [Recovering/Resolving]

NARRATIVE: CASE EVENT DATE: 20171121
